FAERS Safety Report 21054945 (Version 2)
Quarter: 2022Q3

REPORT INFORMATION
  Report Type: Spontaneous
  Country: CN (occurrence: CN)
  Receive Date: 20220707
  Receipt Date: 20220908
  Transmission Date: 20221027
  Serious: Yes (Disabling, Congenital Anomaly, Other)
  Sender: FDA-Public Use
  Company Number: CN-BIOGEN-2022BI01136862

PATIENT
  Age: 0 Year
  Sex: Male
  Weight: 4.9 kg

DRUGS (1)
  1. SPINRAZA [Suspect]
     Active Substance: NUSINERSEN
     Indication: Spinal muscular atrophy
     Route: 050
     Dates: start: 20220419, end: 20220419

REACTIONS (1)
  - Use of accessory respiratory muscles [Not Recovered/Not Resolved]

NARRATIVE: CASE EVENT DATE: 20220424
